FAERS Safety Report 10353847 (Version 1)
Quarter: 2014Q3

REPORT INFORMATION
  Report Type: Spontaneous
  Country: IR (occurrence: IR)
  Receive Date: 20140731
  Receipt Date: 20140731
  Transmission Date: 20150326
  Serious: Yes (Death, Other)
  Sender: FDA-Public Use
  Company Number: IR-PAR PHARMACEUTICAL, INC-2014SCPR009292

PATIENT

DRUGS (4)
  1. RISPERIDONE. [Suspect]
     Active Substance: RISPERIDONE
     Indication: DEPRESSION
  2. BIPERIDEN [Concomitant]
     Active Substance: BIPERIDEN
     Indication: BIPOLAR I DISORDER
     Dosage: 2 MG, / DAY
     Route: 065
  3. BIPERIDEN [Concomitant]
     Active Substance: BIPERIDEN
     Indication: DEPRESSION
  4. RISPERIDONE. [Suspect]
     Active Substance: RISPERIDONE
     Indication: BIPOLAR I DISORDER
     Dosage: 4 MG, / DAY
     Route: 065

REACTIONS (3)
  - Cardiac arrest [Fatal]
  - Deep vein thrombosis [Unknown]
  - Death [Fatal]
